FAERS Safety Report 22271857 (Version 1)
Quarter: 2023Q2

REPORT INFORMATION
  Report Type: Spontaneous
  Country: US (occurrence: US)
  Receive Date: 20230502
  Receipt Date: 20230502
  Transmission Date: 20230722
  Serious: Yes (Other)
  Sender: FDA-Public Use
  Company Number: US-002147023-NVSC2023US095342

PATIENT
  Age: 48 Year
  Sex: Female

DRUGS (5)
  1. CLARITHROMYCIN [Suspect]
     Active Substance: CLARITHROMYCIN
     Indication: Product used for unknown indication
     Dosage: UNK
     Route: 065
     Dates: start: 20221216, end: 20230117
  2. TIGECYCLINE [Suspect]
     Active Substance: TIGECYCLINE
     Indication: Product used for unknown indication
     Dosage: UNK
     Route: 065
     Dates: end: 20230218
  3. LINEZOLID [Suspect]
     Active Substance: LINEZOLID
     Indication: Product used for unknown indication
     Dosage: UNK
     Route: 065
  4. AMIKACIN [Suspect]
     Active Substance: AMIKACIN
     Indication: Product used for unknown indication
     Dosage: UNK
     Route: 065
     Dates: start: 20221205
  5. CEFOXITIN [Suspect]
     Active Substance: CEFOXITIN SODIUM
     Indication: Product used for unknown indication
     Dosage: UNK
     Route: 065
     Dates: start: 20221205

REACTIONS (12)
  - Leukopenia [Unknown]
  - Skin ulcer [Unknown]
  - Purulence [Unknown]
  - Wound dehiscence [Unknown]
  - Wound infection [Unknown]
  - Klebsiella test positive [Unknown]
  - Skin mass [Unknown]
  - Abdominal discomfort [Unknown]
  - Excessive granulation tissue [Unknown]
  - Scar [Unknown]
  - Wound [Unknown]
  - Postoperative wound infection [Unknown]
